FAERS Safety Report 15228386 (Version 1)
Quarter: 2018Q3

REPORT INFORMATION
  Report Type: Spontaneous
  Country: US (occurrence: US)
  Receive Date: 20180801
  Receipt Date: 20180801
  Transmission Date: 20181010
  Serious: Yes (Death, Life-Threatening, Hospitalization)
  Sender: FDA-Public Use
  Company Number: US-SA-2018SA202423

PATIENT
  Age: 21 Year
  Sex: Male

DRUGS (6)
  1. RANITIDINE HYDROCHLORIDE. [Suspect]
     Active Substance: RANITIDINE HYDROCHLORIDE
  2. CEFTRIAXONE SODIUM. [Suspect]
     Active Substance: CEFTRIAXONE SODIUM
     Dosage: UNK UNK, UNK
  3. DEXAMETHASONE. [Suspect]
     Active Substance: DEXAMETHASONE
     Dosage: UNK UNK, UNK
  4. MANNITOL. [Suspect]
     Active Substance: MANNITOL
     Dosage: UNK UNK, UNK
  5. PROMETHAZINE [Suspect]
     Active Substance: PROMETHAZINE\PROMETHAZINE HYDROCHLORIDE
  6. DIAZEPAM. [Suspect]
     Active Substance: DIAZEPAM
     Dosage: UNK UNK, UNK

REACTIONS (5)
  - Unresponsive to stimuli [Fatal]
  - Reflexes abnormal [Fatal]
  - Respiratory distress [Fatal]
  - Hepatic enzyme increased [Fatal]
  - Clonus [Fatal]
